FAERS Safety Report 8803257 (Version 1)
Quarter: 2012Q4

REPORT INFORMATION
  Report Type: Report from Study
  Country: CA (occurrence: CA)
  Receive Date: 20120924
  Receipt Date: 20120924
  Transmission Date: 20130627
  Serious: Yes (Hospitalization)
  Sender: FDA-Public Use
  Company Number: CA-JNJFOC-20120905788

PATIENT
  Age: 59 Year
  Sex: Female
  Weight: 69.9 kg

DRUGS (2)
  1. REMICADE [Suspect]
     Indication: RHEUMATOID ARTHRITIS
     Route: 042
  2. REMICADE [Suspect]
     Indication: RHEUMATOID ARTHRITIS
     Route: 042
     Dates: start: 20100719

REACTIONS (2)
  - Cholecystectomy [Recovering/Resolving]
  - Nausea [Recovered/Resolved]
